FAERS Safety Report 9604011 (Version 1)
Quarter: 2013Q4

REPORT INFORMATION
  Report Type: Spontaneous
  Country: US (occurrence: US)
  Receive Date: 20131008
  Receipt Date: 20131008
  Transmission Date: 20140711
  Serious: No
  Sender: FDA-Public Use
  Company Number: US-BIOGENIDEC-2013BI096832

PATIENT
  Sex: Female

DRUGS (2)
  1. TYSABRI [Suspect]
     Indication: MULTIPLE SCLEROSIS
     Route: 042
     Dates: start: 20050131
  2. TECFIDERA [Concomitant]
     Indication: MULTIPLE SCLEROSIS
     Dates: end: 20130731

REACTIONS (4)
  - Gastrointestinal disorder [Not Recovered/Not Resolved]
  - Gastrostomy [Unknown]
  - Rash [Not Recovered/Not Resolved]
  - Flushing [Recovered/Resolved]
